FAERS Safety Report 5093200-1 (Version None)
Quarter: 2006Q3

REPORT INFORMATION
  Report Type: 
  Country: None (occurrence: None)
  Receive Date: 20060728
  Receipt Date: 20060511
  Transmission Date: 20061208
  Serious: Yes (Death)
  Sender: FDA-Public Use
  Company Number: COT_0379_2006

PATIENT
  Age: 58 Year
  Sex: Female
  Weight: 70.8 kg

DRUGS (12)
  1. VENTAVIS [Suspect]
     Indication: PULMONARY HYPERTENSION
     Dosage: 5 MCG 6XD IH
     Dates: start: 20051207
  2. TRACLEER [Concomitant]
  3. BUMEX [Concomitant]
  4. HYDROCHLOROTHIAZDE TAB [Concomitant]
  5. RYTHMOL [Concomitant]
  6. VICODIN [Concomitant]
  7. DIAZEPAM [Concomitant]
  8. POTASSIUM [Concomitant]
  9. LISINOPRIL [Concomitant]
  10. CARTIA XT [Concomitant]
  11. COUMADIN [Concomitant]
  12. OXYGEN [Concomitant]

REACTIONS (6)
  - ATRIAL FIBRILLATION [None]
  - CHEST DISCOMFORT [None]
  - DYSPNOEA [None]
  - FACE OEDEMA [None]
  - OEDEMA [None]
  - RIGHT VENTRICULAR FAILURE [None]
